FAERS Safety Report 4682152-1 (Version None)
Quarter: 2005Q2

REPORT INFORMATION
  Report Type: 
  Country: None (occurrence: None)
  Receive Date: 20050526
  Receipt Date: 20050405
  Transmission Date: 20051028
  Serious: Yes (Other)
  Sender: FDA-Public Use
  Company Number: US-JNJFOC-20050401828

PATIENT
  Sex: Female

DRUGS (1)
  1. RISPERDAL [Suspect]
     Indication: SCHIZOPHRENIA
     Dosage: 1 IN 2 WEEK, INTRAVENOUS
     Route: 042
     Dates: end: 20050301

REACTIONS (2)
  - CONVULSION [None]
  - DIABETES MELLITUS [None]
